FAERS Safety Report 5822148-7 (Version None)
Quarter: 2008Q3

REPORT INFORMATION
  Report Type: 
  Country: None (occurrence: None)
  Receive Date: 20080725
  Receipt Date: 20080718
  Transmission Date: 20090109
  Serious: Yes (Other)
  Sender: FDA-Public Use
  Company Number: PHHY2008FR13719

PATIENT
  Age: 80 Year
  Sex: Male

DRUGS (2)
  1. EXELON [Suspect]
     Dosage: 3 MG, BID
     Dates: start: 20070701
  2. CORDARONE [Concomitant]
     Dosage: UNK
     Dates: end: 20080201

REACTIONS (5)
  - CONDITION AGGRAVATED [None]
  - FORMICATION [None]
  - GAIT DISTURBANCE [None]
  - NEUROPATHY PERIPHERAL [None]
  - SENSORY LOSS [None]
